FAERS Safety Report 22259238 (Version 1)
Quarter: 2023Q2

REPORT INFORMATION
  Report Type: Spontaneous
  Country: US (occurrence: None)
  Receive Date: 20230426
  Receipt Date: 20230426
  Transmission Date: 20230721
  Serious: Yes (Death)
  Sender: FDA-Public Use
  Company Number: None

PATIENT
  Age: 79 Year
  Sex: Male
  Weight: 72.6 kg

DRUGS (2)
  1. SOTORASIB [Suspect]
     Active Substance: SOTORASIB
     Indication: Colon cancer stage II
     Dosage: FREQUENCY : DAILY;?
     Route: 048
     Dates: start: 20230208, end: 20230419
  2. PANITUMUMAB [Concomitant]
     Active Substance: PANITUMUMAB
     Dates: start: 20230208, end: 20230419

REACTIONS (2)
  - Hepatotoxicity [None]
  - Acute kidney injury [None]

NARRATIVE: CASE EVENT DATE: 20230419
